FAERS Safety Report 10035386 (Version 2)
Quarter: 2014Q2

REPORT INFORMATION
  Report Type: Spontaneous
  Country: US (occurrence: US)
  Receive Date: 20140325
  Receipt Date: 20140423
  Transmission Date: 20141212
  Serious: Yes (Death)
  Sender: FDA-Public Use
  Company Number: US-PFIZER INC-2014082981

PATIENT
  Age: 21 Year
  Sex: Male

DRUGS (4)
  1. MORPHINE SULFATE [Suspect]
     Dosage: UNK
     Route: 048
  2. TRAMADOL HYDROCHLORIDE [Suspect]
     Dosage: UNK
     Route: 048
  3. FENTANYL [Suspect]
     Dosage: UNK
  4. HEROIN [Suspect]
     Dosage: UNK

REACTIONS (2)
  - Overdose [Fatal]
  - Substance abuse [Fatal]
